FAERS Safety Report 5827001-0 (Version None)
Quarter: 2008Q3

REPORT INFORMATION
  Report Type: 
  Country: None (occurrence: None)
  Receive Date: 20080725
  Receipt Date: 20080717
  Transmission Date: 20090109
  Serious: Yes (Hospitalization)
  Sender: FDA-Public Use
  Company Number: CHNY2007JP03736

PATIENT
  Age: 63 Year
  Sex: Male
  Weight: 59 kg

DRUGS (8)
  1. NICOTINELL TTS               TRANS-THERAPEUTIC-SYSTEM [Suspect]
     Indication: SMOKING CESSATION THERAPY
     Dosage: 21 MG, QD, TRANSDERMAL, 7 MG, 3 PATCES (TEST), TRANSDERMAL, 14 MG, QD, TRANSDERMAL, 7 MG, QD, TRANSD
     Route: 062
     Dates: start: 20071001, end: 20071001
  2. NICOTINELL TTS               TRANS-THERAPEUTIC-SYSTEM [Suspect]
     Indication: SMOKING CESSATION THERAPY
     Dosage: 21 MG, QD, TRANSDERMAL, 7 MG, 3 PATCES (TEST), TRANSDERMAL, 14 MG, QD, TRANSDERMAL, 7 MG, QD, TRANSD
     Route: 062
     Dates: start: 20071006, end: 20071018
  3. NICOTINELL TTS               TRANS-THERAPEUTIC-SYSTEM [Suspect]
     Indication: SMOKING CESSATION THERAPY
     Dosage: 21 MG, QD, TRANSDERMAL, 7 MG, 3 PATCES (TEST), TRANSDERMAL, 14 MG, QD, TRANSDERMAL, 7 MG, QD, TRANSD
     Route: 062
     Dates: start: 20071019, end: 20071031
  4. NICOTINELL TTS               TRANS-THERAPEUTIC-SYSTEM [Suspect]
     Indication: SMOKING CESSATION THERAPY
     Dosage: 21 MG, QD, TRANSDERMAL, 7 MG, 3 PATCES (TEST), TRANSDERMAL, 14 MG, QD, TRANSDERMAL, 7 MG, QD, TRANSD
     Route: 062
     Dates: start: 20071101, end: 20071102
  5. ASPIRIN [Concomitant]
  6. NORVASC [Concomitant]
  7. ENALAPRIL MALEATE [Concomitant]
  8. DOXAZOSIN MESYLATE [Concomitant]

REACTIONS (2)
  - CONCOMITANT DISEASE AGGRAVATED [None]
  - MYASTHENIA GRAVIS [None]
